FAERS Safety Report 18377768 (Version 1)
Quarter: 2020Q4

REPORT INFORMATION
  Report Type: Spontaneous
  Country: FR (occurrence: FR)
  Receive Date: 20201013
  Receipt Date: 20201013
  Transmission Date: 20210114
  Serious: Yes (Hospitalization)
  Sender: FDA-Public Use
  Company Number: FR-PFIZER INC-2020391673

PATIENT
  Sex: Female

DRUGS (5)
  1. ZOPICLONE [Suspect]
     Active Substance: ZOPICLONE
     Dosage: 7.5 MG, 1X/DAY (ORALLY TAKEN BY THE MOTHER)
     Route: 064
     Dates: start: 20190306, end: 20191129
  2. ALPRAZOLAM. [Suspect]
     Active Substance: ALPRAZOLAM
     Dosage: UNK
     Route: 064
     Dates: start: 20190306, end: 201907
  3. FLUOXETINE HYDROCHLORIDE. [Concomitant]
     Active Substance: FLUOXETINE HYDROCHLORIDE
     Dosage: UNK
  4. VALIUM [Suspect]
     Active Substance: DIAZEPAM
     Dosage: 20 MG, 1X/DAY  (ORALLY TAKEN BY THE MOTHER)
     Route: 064
     Dates: start: 201907, end: 20191129
  5. BUPRENORPHINE. [Suspect]
     Active Substance: BUPRENORPHINE
     Indication: DRUG DEPENDENCE
     Dosage: 22 MG, 1X/DAY
     Route: 064
     Dates: start: 20190306, end: 20191129

REACTIONS (2)
  - Withdrawal syndrome [Recovered/Resolved]
  - Foetal growth restriction [Recovered/Resolved]

NARRATIVE: CASE EVENT DATE: 20191129
